FAERS Safety Report 7233448-0 (Version None)
Quarter: 2011Q1

REPORT INFORMATION
  Report Type: 
  Country: None (occurrence: None)
  Receive Date: 20110119
  Receipt Date: 20110111
  Transmission Date: 20110831
  Serious: Yes (Death)
  Sender: FDA-Public Use
  Company Number: JP-AMGEN-JPNCT2010009634

PATIENT

DRUGS (11)
  1. CORTICOSTEROIDS [Concomitant]
     Indication: PROPHYLAXIS
     Route: 065
  2. PANITUMUMAB [Suspect]
     Indication: COLORECTAL CANCER
     Dosage: 6 MG/KG, Q2WK
     Route: 041
     Dates: start: 20101111, end: 20101111
  3. MOHRUS TAPE L [Concomitant]
     Route: 062
  4. FLIVAS OD [Concomitant]
     Route: 048
  5. MUCOSTA [Concomitant]
     Route: 048
  6. VITAMEDIN CAPSULE [Concomitant]
     Route: 048
  7. 2MG CERCINE TABLETS [Concomitant]
     Route: 048
  8. LOXONIN [Concomitant]
     Route: 048
  9. HALCION [Concomitant]
     Route: 048
  10. BUP-4 [Concomitant]
     Route: 048
  11. BLOPRESS TABLETS 12 [Concomitant]
     Route: 048

REACTIONS (1)
  - INTERSTITIAL LUNG DISEASE [None]
